FAERS Safety Report 7917786-1 (Version None)
Quarter: 2011Q4

REPORT INFORMATION
  Report Type: 
  Country: None (occurrence: None)
  Receive Date: 20111116
  Receipt Date: 20111102
  Transmission Date: 20120403
  Serious: Yes (Hospitalization)
  Sender: FDA-Public Use
  Company Number: US-ROCHE-GNE322690

PATIENT
  Sex: Male
  Weight: 4.086 kg

DRUGS (1)
  1. OMALIZUMAB [Suspect]
     Indication: ASTHMA
     Dosage: UNK
     Route: 064
     Dates: start: 20081001

REACTIONS (3)
  - JAUNDICE [None]
  - ISOIMMUNE HAEMOLYTIC DISEASE [None]
  - MATERNAL DRUGS AFFECTING FOETUS [None]
